FAERS Safety Report 6541677-4 (Version None)
Quarter: 2010Q1

REPORT INFORMATION
  Report Type: 
  Country: None (occurrence: None)
  Receive Date: 20100119
  Receipt Date: 20100104
  Transmission Date: 20100710
  Serious: Yes (Other)
  Sender: FDA-Public Use
  Company Number: GB-MYLANLABS-2010S1000115

PATIENT
  Age: 25 Year
  Sex: Female

DRUGS (2)
  1. SERTRALINE HYDROCHLORIDE [Suspect]
     Indication: DRUG USE FOR UNKNOWN INDICATION
     Dates: start: 20070301, end: 20080401
  2. SERTRALINE HYDROCHLORIDE [Suspect]
     Dates: end: 20090501

REACTIONS (1)
  - PSORIASIS [None]
